FAERS Safety Report 13196245 (Version 2)
Quarter: 2017Q1

REPORT INFORMATION
  Report Type: Spontaneous
  Country: US (occurrence: US)
  Receive Date: 20170208
  Receipt Date: 20170228
  Transmission Date: 20170428
  Serious: No
  Sender: FDA-Public Use
  Company Number: US-PFIZER INC-2017050994

PATIENT
  Age: 48 Year
  Sex: Male
  Weight: 111 kg

DRUGS (1)
  1. VIAGRA [Suspect]
     Active Substance: SILDENAFIL CITRATE
     Dosage: 50 MG, UNK
     Dates: start: 201610

REACTIONS (2)
  - Erection increased [Unknown]
  - Ejaculation disorder [Unknown]
